FAERS Safety Report 5061918-2 (Version None)
Quarter: 2006Q3

REPORT INFORMATION
  Report Type: 
  Country: None (occurrence: None)
  Receive Date: 20060720
  Receipt Date: 20060720
  Transmission Date: 20061208
  Serious: Yes (Death)
  Sender: FDA-Public Use
  Company Number: None

PATIENT
  Sex: Female
  Weight: 51 kg

DRUGS (2)
  1. WARFARIN SODIUM [Suspect]
     Indication: CARDIAC PACEMAKER INSERTION
     Dosage: 2 MG DAILY PO
     Route: 048
     Dates: start: 20060406
  2. CIPROFLOXACIN [Suspect]
     Dosage: 500 MG TWICE DAILY PO
     Route: 048
     Dates: start: 20060412, end: 20060419

REACTIONS (7)
  - ARTHRALGIA [None]
  - COAGULOPATHY [None]
  - CONTUSION [None]
  - FALL [None]
  - MUSCLE HAEMORRHAGE [None]
  - RENAL FAILURE [None]
  - SUBDURAL HAEMATOMA [None]
